FAERS Safety Report 8901753 (Version 1)
Quarter: 2012Q4

REPORT INFORMATION
  Report Type: Spontaneous
  Country: US (occurrence: None)
  Receive Date: 20121105
  Receipt Date: 20121105
  Transmission Date: 20130627
  Serious: Yes (Other)
  Sender: FDA-Public Use
  Company Number: 2008US001220

PATIENT
  Age: 4 Year
  Sex: Male

DRUGS (2)
  1. TACROLIMUS OINTMENT [Suspect]
     Indication: DERMATITIS ATOPIC
     Route: 061
     Dates: start: 20040219
  2. TACROLIMUS OINTMENT [Suspect]
     Indication: DERMATITIS ATOPIC
     Dates: start: 20070509

REACTIONS (2)
  - Branchial cyst [None]
  - Cyst removal [None]
